FAERS Safety Report 7222870-4 (Version None)
Quarter: 2011Q1

REPORT INFORMATION
  Report Type: 
  Country: None (occurrence: None)
  Receive Date: 20110112
  Receipt Date: 20110104
  Transmission Date: 20110831
  Serious: Yes (Other)
  Sender: FDA-Public Use
  Company Number: US-BAYER-2011-001530

PATIENT
  Sex: Female

DRUGS (1)
  1. MIRENA [Suspect]
     Indication: CONTRACEPTION
     Dosage: 20 MCG/24HR, CONT
     Route: 015
     Dates: start: 20090108

REACTIONS (4)
  - OVARIAN DISORDER [None]
  - VAGINITIS BACTERIAL [None]
  - ABDOMINAL PAIN [None]
  - VULVOVAGINAL MYCOTIC INFECTION [None]
